FAERS Safety Report 15109751 (Version 1)
Quarter: 2018Q3

REPORT INFORMATION
  Report Type: Spontaneous
  Country: US (occurrence: US)
  Receive Date: 20180705
  Receipt Date: 20180705
  Transmission Date: 20181010
  Serious: Yes (Other)
  Sender: FDA-Public Use
  Company Number: US-B.I. PHARMACEUTICALS,INC./RIDGEFIELD-2018-BI-033941

PATIENT

DRUGS (1)
  1. PRADAXA [Suspect]
     Active Substance: DABIGATRAN ETEXILATE MESYLATE
     Indication: PRODUCT USED FOR UNKNOWN INDICATION
     Route: 065
     Dates: start: 201312

REACTIONS (15)
  - Headache [Unknown]
  - Gastrointestinal disorder [Unknown]
  - Gait disturbance [Unknown]
  - Throat irritation [Unknown]
  - Drooling [Unknown]
  - Cerebrovascular accident [Unknown]
  - Nausea [Unknown]
  - Weight decreased [Unknown]
  - Hypoacusis [Unknown]
  - Urinary tract disorder [Unknown]
  - Gastric infection [Unknown]
  - Speech disorder [Unknown]
  - Intracranial aneurysm [Unknown]
  - Pharyngeal haemorrhage [Unknown]
  - Oropharyngeal pain [Unknown]

NARRATIVE: CASE EVENT DATE: 201401
